FAERS Safety Report 24084735 (Version 1)
Quarter: 2024Q3

REPORT INFORMATION
  Report Type: Spontaneous
  Country: CN (occurrence: CN)
  Receive Date: 20240712
  Receipt Date: 20240712
  Transmission Date: 20241017
  Serious: Yes (Other)
  Sender: PFIZER
  Company Number: CN-PFIZER INC-PV202400089416

PATIENT
  Age: 42 Year
  Sex: Male

DRUGS (2)
  1. CYTARABINE [Suspect]
     Active Substance: CYTARABINE
     Indication: Acute myeloid leukaemia
     Dosage: 2.3G BID
     Route: 041
     Dates: start: 20240417, end: 20240420
  2. CYTARABINE [Suspect]
     Active Substance: CYTARABINE
     Dosage: 3.3 G, 2X/DAY
     Route: 041
     Dates: start: 20240529, end: 20240531

REACTIONS (1)
  - Hepatic failure [Recovered/Resolved]

NARRATIVE: CASE EVENT DATE: 20240529
